FAERS Safety Report 9885317 (Version 1)
Quarter: 2014Q1

REPORT INFORMATION
  Report Type: Spontaneous
  Country: US (occurrence: US)
  Receive Date: 20140210
  Receipt Date: 20140210
  Transmission Date: 20141002
  Serious: No
  Sender: FDA-Public Use
  Company Number: US-PFIZER INC-2014037305

PATIENT
  Age: 64 Year
  Sex: Female
  Weight: 65.76 kg

DRUGS (4)
  1. GABAPENTIN [Suspect]
     Indication: NEURALGIA
     Dosage: 3000 MG, DAILY
     Dates: start: 2008, end: 2009
  2. GABAPENTIN [Suspect]
     Indication: BURNING SENSATION
  3. GABAPENTIN [Suspect]
     Indication: FIBROMYALGIA
  4. ZOCOR [Concomitant]
     Indication: BLOOD CHOLESTEROL INCREASED
     Dosage: 10 MG, DAILY

REACTIONS (1)
  - Weight increased [Unknown]
